FAERS Safety Report 23136051 (Version 1)
Quarter: 2023Q4

REPORT INFORMATION
  Report Type: Spontaneous
  Country: CN (occurrence: CN)
  Receive Date: 20231102
  Receipt Date: 20231102
  Transmission Date: 20240110
  Serious: Yes (Hospitalization, Other)
  Sender: FDA-Public Use
  Company Number: CN-BAYER-2023A151792

PATIENT
  Age: 77 Year
  Sex: Male

DRUGS (2)
  1. XARELTO [Suspect]
     Active Substance: RIVAROXABAN
     Indication: Atrial fibrillation
     Dosage: 10 MG, QD
     Route: 048
     Dates: start: 20210512, end: 20230715
  2. AMINOPHENAZONE\CAFFEINE\PHENACETIN\PHENOBARBITAL [Suspect]
     Active Substance: AMINOPHENAZONE\CAFFEINE\PHENACETIN\PHENOBARBITAL
     Indication: Back pain
     Dosage: 1-2 TABLETS, QD
     Route: 048
     Dates: start: 20180701, end: 20230715

REACTIONS (12)
  - Lower gastrointestinal haemorrhage [Recovering/Resolving]
  - Melaena [Recovered/Resolved]
  - Diarrhoea haemorrhagic [Unknown]
  - Large intestine erosion [Unknown]
  - Ileal ulcer [Unknown]
  - Gastrointestinal mucosa hyperaemia [Unknown]
  - Haemoglobin decreased [Unknown]
  - Dizziness [Unknown]
  - Asthenia [Unknown]
  - Haemorrhoids [Unknown]
  - Underdose [Unknown]
  - Prescribed underdose [Unknown]

NARRATIVE: CASE EVENT DATE: 20210512
